FAERS Safety Report 10252927 (Version 1)
Quarter: 2014Q2

REPORT INFORMATION
  Report Type: Spontaneous
  Country: US (occurrence: US)
  Receive Date: 20140623
  Receipt Date: 20140623
  Transmission Date: 20141212
  Serious: No
  Sender: FDA-Public Use
  Company Number: US-PFIZER INC-2014169559

PATIENT
  Age: 55 Year
  Sex: Male
  Weight: 104.31 kg

DRUGS (1)
  1. NEURONTIN [Suspect]
     Indication: NEUROPATHY PERIPHERAL
     Dosage: 2400 MG, DAILY
     Dates: start: 2014, end: 2014

REACTIONS (1)
  - Drug ineffective [Unknown]
